FAERS Safety Report 7759177-2 (Version None)
Quarter: 2011Q3

REPORT INFORMATION
  Report Type: 
  Country: None (occurrence: None)
  Receive Date: 20110915
  Receipt Date: 20110902
  Transmission Date: 20111222
  Serious: Yes (Hospitalization)
  Sender: FDA-Public Use
  Company Number: IPC201109-003167

PATIENT
  Age: 43 Year
  Sex: Female

DRUGS (2)
  1. CARVEDILOL [Suspect]
     Dosage: 3.125 MG BID
  2. PROPRANOLOL HYDROCHLORIDE [Suspect]
     Indication: MIGRAINE
     Dosage: 60 MG DAILY

REACTIONS (10)
  - LEFT VENTRICULAR FAILURE [None]
  - NAUSEA [None]
  - TROPONIN I INCREASED [None]
  - VOMITING [None]
  - CONGESTIVE CARDIOMYOPATHY [None]
  - PHAEOCHROMOCYTOMA [None]
  - BLOOD PRESSURE INCREASED [None]
  - ELECTROCARDIOGRAM T WAVE INVERSION [None]
  - HYPOTENSION [None]
  - HAEMODYNAMIC INSTABILITY [None]
